FAERS Safety Report 17641707 (Version 1)
Quarter: 2020Q2

REPORT INFORMATION
  Report Type: Spontaneous
  Country: AE (occurrence: AE)
  Receive Date: 20200408
  Receipt Date: 20200408
  Transmission Date: 20200713
  Serious: Yes (Hospitalization, Other)
  Sender: FDA-Public Use
  Company Number: AE-ACCORD-178268

PATIENT
  Age: 57 Year
  Sex: Male

DRUGS (4)
  1. OXALIPLATIN. [Suspect]
     Active Substance: OXALIPLATIN
     Indication: CHOLANGIOCARCINOMA
  2. FLUOROURACIL. [Concomitant]
     Active Substance: FLUOROURACIL
     Indication: CHOLANGIOCARCINOMA
  3. FOLINIC ACID [Concomitant]
     Active Substance: LEUCOVORIN
     Indication: CHOLANGIOCARCINOMA
  4. IRINOTECAN [Concomitant]
     Active Substance: IRINOTECAN
     Indication: CHOLANGIOCARCINOMA

REACTIONS (5)
  - Myalgia [Recovering/Resolving]
  - Renal tubular acidosis [Recovering/Resolving]
  - Fanconi syndrome [Recovering/Resolving]
  - Ileus [Unknown]
  - Nephropathy [Recovering/Resolving]
